FAERS Safety Report 12495550 (Version 1)
Quarter: 2016Q2

REPORT INFORMATION
  Report Type: Spontaneous
  Country: US (occurrence: None)
  Receive Date: 20160623
  Receipt Date: 20160623
  Transmission Date: 20160815
  Serious: Yes (Life-Threatening, Hospitalization)
  Sender: FDA-Public Use
  Company Number: None

PATIENT
  Age: 85 Year
  Sex: Male
  Weight: 77.3 kg

DRUGS (1)
  1. RIVAROXABAN [Suspect]
     Active Substance: RIVAROXABAN
     Indication: DEEP VEIN THROMBOSIS
     Route: 048
     Dates: start: 20160205, end: 20160303

REACTIONS (4)
  - Facial paralysis [None]
  - Dysarthria [None]
  - Basal ganglia haemorrhage [None]
  - Basal ganglia stroke [None]

NARRATIVE: CASE EVENT DATE: 20160303
